FAERS Safety Report 14294867 (Version 1)
Quarter: 2017Q4

REPORT INFORMATION
  Report Type: Spontaneous
  Country: US (occurrence: US)
  Receive Date: 20171218
  Receipt Date: 20171218
  Transmission Date: 20180321
  Serious: No
  Sender: FDA-Public Use
  Company Number: US-ASTRAZENECA-2017SF25302

PATIENT
  Age: 70 Year
  Sex: Male

DRUGS (5)
  1. LISINOPRIL. [Suspect]
     Active Substance: LISINOPRIL
     Indication: PRODUCT USED FOR UNKNOWN INDICATION
     Route: 048
  2. MYRBETRIQ [Suspect]
     Active Substance: MIRABEGRON
     Indication: PRODUCT USED FOR UNKNOWN INDICATION
     Dosage: ONCE DAILY
     Route: 048
     Dates: start: 201711
  3. PRILOSEC [Suspect]
     Active Substance: OMEPRAZOLE MAGNESIUM
     Indication: PRODUCT USED FOR UNKNOWN INDICATION
     Dosage: (10 (HALF TABLET))
     Route: 048
  4. ATORVASTATIN [Suspect]
     Active Substance: ATORVASTATIN
     Indication: PRODUCT USED FOR UNKNOWN INDICATION
     Dosage: 10 MG, UNKNOWN
     Route: 048
  5. LISINOPRIL-HYDROCHLOROTHIAZIDE [Suspect]
     Active Substance: HYDROCHLOROTHIAZIDE\LISINOPRIL
     Indication: PRODUCT USED FOR UNKNOWN INDICATION
     Dosage: (20/12.5), UNKNOWN
     Route: 048

REACTIONS (1)
  - Parosmia [Unknown]
